FAERS Safety Report 13937926 (Version 1)
Quarter: 2017Q3

REPORT INFORMATION
  Report Type: Spontaneous
  Country: US (occurrence: US)
  Receive Date: 20170905
  Receipt Date: 20170905
  Transmission Date: 20171127
  Serious: No
  Sender: FDA-Public Use
  Company Number: US-009507513-1708USA009182

PATIENT
  Age: 54 Year
  Sex: Male

DRUGS (3)
  1. ZEPATIER [Suspect]
     Active Substance: ELBASVIR\GRAZOPREVIR
     Indication: HEPATITIS C
     Dosage: 50 100MG, ONE TABLET BY MOUTH, QD
     Route: 048
     Dates: start: 201708
  2. BIOTIN [Concomitant]
     Active Substance: BIOTIN
     Dosage: UNK, UNKNOWN
     Route: 065
  3. MILK THISTLE [Concomitant]
     Active Substance: MILK THISTLE
     Dosage: UNK, UNKNOWN
     Route: 065

REACTIONS (6)
  - Visual impairment [Recovered/Resolved]
  - Fatigue [Unknown]
  - Diarrhoea [Unknown]
  - Dyspnoea [Unknown]
  - Dizziness [Recovered/Resolved]
  - Ear congestion [Recovered/Resolved]

NARRATIVE: CASE EVENT DATE: 201708
